FAERS Safety Report 24779959 (Version 2)
Quarter: 2025Q1

REPORT INFORMATION
  Report Type: Spontaneous
  Country: CN (occurrence: CN)
  Receive Date: 20241226
  Receipt Date: 20250107
  Transmission Date: 20250408
  Serious: Yes (Hospitalization)
  Sender: NOVO NORDISK
  Company Number: CN-NOVOPROD-1338578

PATIENT
  Age: 43 Year
  Sex: Female
  Weight: 70 kg

DRUGS (4)
  1. NOVORAPID [Suspect]
     Active Substance: INSULIN ASPART
     Indication: Type 2 diabetes mellitus
     Dosage: 58 IU, QD(30 UNITS IN THE MORNING, 28 UNITS IN THE EVENING)
  2. URSODIOL [Concomitant]
     Active Substance: URSODIOL
     Route: 048
     Dates: start: 202404
  3. BICYCLOL [Concomitant]
     Active Substance: BICYCLOL
     Dates: start: 202404
  4. PIPERAZINE BISFERULATE [Concomitant]
     Active Substance: PIPERAZINE BISFERULATE
     Dates: start: 202404

REACTIONS (1)
  - Glomerulonephritis chronic [Unknown]
